FAERS Safety Report 5517393-4 (Version None)
Quarter: 2007Q4

REPORT INFORMATION
  Report Type: 
  Country: None (occurrence: None)
  Receive Date: 20071109
  Receipt Date: 20071030
  Transmission Date: 20080405
  Serious: Yes (Death)
  Sender: FDA-Public Use
  Company Number: 20074216

PATIENT
  Sex: Male
  Weight: 47.2 kg

DRUGS (1)
  1. LIORESAL [Suspect]
     Indication: MUSCLE SPASTICITY
     Dosage: 879.3 - 999 MCG, DAILY, INTRATHECAL
     Route: 037

REACTIONS (10)
  - DEHYDRATION [None]
  - DRUG EFFECT DECREASED [None]
  - DYSPHAGIA [None]
  - HALLUCINATION, VISUAL [None]
  - INFECTION [None]
  - METABOLIC DISORDER [None]
  - NEOPLASM MALIGNANT [None]
  - ORGAN FAILURE [None]
  - PNEUMONIA ASPIRATION [None]
  - WEIGHT DECREASED [None]
